FAERS Safety Report 21129076 (Version 1)
Quarter: 2022Q3

REPORT INFORMATION
  Report Type: Spontaneous
  Country: CH (occurrence: CH)
  Receive Date: 20220725
  Receipt Date: 20220725
  Transmission Date: 20221027
  Serious: Yes (Hospitalization)
  Sender: FDA-Public Use
  Company Number: None

PATIENT
  Age: 38 Year
  Sex: Female

DRUGS (21)
  1. PRIVIGEN [Suspect]
     Active Substance: HUMAN IMMUNOGLOBULIN G
     Indication: Product used for unknown indication
     Dosage: 20 GRAM, TOT
     Route: 042
     Dates: start: 20220505, end: 20220505
  2. HYDROCODONE [Concomitant]
     Active Substance: HYDROCODONE
     Indication: Bronchoscopy
     Dosage: HYDROCODON 6 MG INTRAVEN?S IM RAHMEN DER BRONCHOSKOPIE ; IN TOTAL
     Route: 042
     Dates: start: 20220505, end: 20220505
  3. LIDOCAINE [Concomitant]
     Active Substance: LIDOCAINE
     Indication: Bronchoscopy
     Dosage: 24 MILLILITER, TOT
     Route: 065
     Dates: start: 20220505, end: 20220505
  4. PROPOFOL [Concomitant]
     Active Substance: PROPOFOL
     Indication: Bronchoscopy
     Dosage: 1 DOSAGE FORM, TOT
     Route: 042
     Dates: start: 20220505, end: 20220505
  5. CYCLOSPORINE [Concomitant]
     Active Substance: CYCLOSPORINE
     Dosage: 50 MILLIGRAM, BID
     Route: 048
  6. CELLCEPT [Concomitant]
     Active Substance: MYCOPHENOLATE MOFETIL
     Dosage: 500 MILLIGRAM, BID
     Route: 048
  7. PREDNISOLONE [Concomitant]
     Active Substance: PREDNISOLONE
     Dosage: 10 MILLIGRAM, QD
     Route: 048
  8. BACTRIM [Concomitant]
     Active Substance: SULFAMETHOXAZOLE\TRIMETHOPRIM
     Dosage: 1 DOSAGE FORM, BIW (MONDAY AND WEDNESDAY)
     Route: 048
  9. BACTRIM [Concomitant]
     Active Substance: SULFAMETHOXAZOLE\TRIMETHOPRIM
     Dosage: 0.5 DOSAGE FORM, TIW
     Route: 048
     Dates: start: 202205
  10. SPORANOX [Concomitant]
     Active Substance: ITRACONAZOLE
     Dosage: 100 MILLIGRAM, BID
     Route: 048
  11. VALTREX [Concomitant]
     Active Substance: VALACYCLOVIR HYDROCHLORIDE
     Dosage: 500 MILLIGRAM, BID
     Route: 048
  12. ZITHROMAX [Concomitant]
     Active Substance: AZITHROMYCIN DIHYDRATE
     Dosage: ZITHROMAX? (AZITHROMYCIN) 250 MG MO/MI/FR 1-0-0 ; TIME INTERVAL:
     Route: 048
  13. AMPHOTERICIN B [Concomitant]
     Active Substance: AMPHOTERICIN B
     Dosage: 1 DOSAGE FORM, PRN
     Route: 065
  14. FUNGIZONE [Concomitant]
     Active Substance: AMPHOTERICIN B
     Dosage: 1 DOSAGE FORM
     Route: 055
  15. PANTOZOL [Concomitant]
     Active Substance: PANTOPRAZOLE SODIUM
     Dosage: 40 MILLIGRAM, QD
     Route: 048
  16. MOTILIUM [Concomitant]
     Active Substance: DOMPERIDONE
     Dosage: 10 MILLIGRAM, BID
     Route: 048
  17. CALCIUM\CHOLECALCIFEROL [Concomitant]
     Active Substance: CALCIUM\CHOLECALCIFEROL
     Dosage: 1 DOSAGE FORM
     Route: 048
  18. MAGNESIUM ASPARTATE HYDROCHLORIDE [Concomitant]
     Active Substance: MAGNESIUM ASPARTATE HYDROCHLORIDE
     Dosage: 10 MILLIMOLE, QID
     Route: 048
  19. KCL HAUSMANN [Concomitant]
     Dosage: 10 MILLIMOLE, QD
     Route: 048
  20. EUTHYROX [Concomitant]
     Active Substance: LEVOTHYROXINE SODIUM
     Dosage: 25 MICROGRAM, QD
     Route: 048
  21. TORSEMIDE [Concomitant]
     Active Substance: TORSEMIDE
     Dosage: 15 MILLIGRAM, TID
     Route: 048

REACTIONS (8)
  - Transfusion-related acute lung injury [Recovering/Resolving]
  - Pyrexia [Recovering/Resolving]
  - Chills [Recovering/Resolving]
  - Nausea [Recovering/Resolving]
  - Vomiting [Recovering/Resolving]
  - Erythema [Recovering/Resolving]
  - Hypotonia [Recovering/Resolving]
  - Pulmonary oedema [Recovering/Resolving]

NARRATIVE: CASE EVENT DATE: 20220505
